FAERS Safety Report 8280260-X (Version None)
Quarter: 2012Q2

REPORT INFORMATION
  Report Type: 
  Country: None (occurrence: None)
  Receive Date: 20120412
  Receipt Date: 20110922
  Transmission Date: 20120825
  Serious: No
  Sender: FDA-Public Use
  Company Number: US-ASTRAZENECA-2011SE57299

PATIENT
  Age: 65 Year
  Sex: Female
  Weight: 83.9 kg

DRUGS (11)
  1. GALACTIN [Concomitant]
     Indication: ARTHRALGIA
  2. ARMOR THYROID [Concomitant]
     Indication: HYPOTHYROIDISM
  3. LIPITOR [Concomitant]
  4. NEXIUM [Suspect]
     Indication: GASTROOESOPHAGEAL REFLUX DISEASE
     Route: 048
  5. PRAXIL [Concomitant]
     Indication: DEPRESSION
  6. CELEBREX [Concomitant]
     Indication: SURGERY
  7. NEXIUM [Suspect]
     Route: 048
  8. NORVAX [Concomitant]
     Indication: RETINAL MIGRAINE
  9. TOPAMAX [Concomitant]
     Indication: MIGRAINE
  10. BACOFEN [Concomitant]
     Indication: PHANTOM PAIN
  11. VICODIN [Concomitant]
     Indication: PAIN

REACTIONS (4)
  - ABDOMINAL DISCOMFORT [None]
  - DRUG INEFFECTIVE [None]
  - GASTRIC MUCOSA ERYTHEMA [None]
  - DYSPEPSIA [None]
